FAERS Safety Report 9393407 (Version 2)
Quarter: 2013Q3

REPORT INFORMATION
  Report Type: Report from Study
  Country: US (occurrence: US)
  Receive Date: 20130710
  Receipt Date: 20130808
  Transmission Date: 20140515
  Serious: No
  Sender: FDA-Public Use
  Company Number: PHEH2012US024810

PATIENT
  Age: 65 Year
  Sex: Male

DRUGS (12)
  1. TASIGNA [Suspect]
     Indication: CHRONIC MYELOID LEUKAEMIA
     Dosage: 300 MG, BID
     Route: 048
     Dates: start: 20120523
  2. ALBUTEROL SULFATE [Concomitant]
  3. ASPIRIN [Concomitant]
     Dosage: 1 DF, DAILY
     Route: 048
  4. FUROSEMIDE [Concomitant]
     Indication: FLUID RETENTION
     Dosage: 20 MG, DAILY
  5. NORVASC [Concomitant]
     Dosage: 10 MG, QD
     Route: 048
  6. PRILOSEC [Concomitant]
     Dosage: 20 MG, QD
     Route: 048
  7. SYNTHROID [Concomitant]
     Dosage: 2 DF, BID
     Route: 048
  8. TOPROL XL [Concomitant]
     Dosage: 1 DF, QD
     Route: 048
  9. TRICOR [Concomitant]
     Dosage: 1 DF, QD
     Route: 048
  10. VIIBRYD [Concomitant]
     Dosage: 1 DF, QD
     Route: 048
  11. VYTORIN [Concomitant]
     Dosage: 10-40 MG TABLET ONCE DAILY
     Route: 048
  12. ZYRTEC [Concomitant]
     Dosage: 1 DF, QD
     Route: 048

REACTIONS (7)
  - Rash [Not Recovered/Not Resolved]
  - Furuncle [Not Recovered/Not Resolved]
  - Skin disorder [Not Recovered/Not Resolved]
  - Pruritus [Not Recovered/Not Resolved]
  - Dry skin [Not Recovered/Not Resolved]
  - Alopecia [Not Recovered/Not Resolved]
  - Dizziness [Not Recovered/Not Resolved]
